FAERS Safety Report 16626702 (Version 1)
Quarter: 2019Q3

REPORT INFORMATION
  Report Type: Spontaneous
  Country: US (occurrence: US)
  Receive Date: 20190724
  Receipt Date: 20190724
  Transmission Date: 20191004
  Serious: No
  Sender: FDA-Public Use
  Company Number: US-SUNOVION-2019SUN002951

PATIENT
  Age: 73 Year
  Sex: Female

DRUGS (5)
  1. LAMICTAL XR [Concomitant]
     Active Substance: LAMOTRIGINE
     Dosage: UNK
     Route: 065
  2. METOPROLOL ACTAVIS [Concomitant]
     Active Substance: METOPROLOL
     Dosage: UNK
     Route: 065
  3. LOSARTAN ACTAVIS [Concomitant]
     Active Substance: LOSARTAN
     Dosage: UNK
     Route: 065
  4. LATUDA [Suspect]
     Active Substance: LURASIDONE HYDROCHLORIDE
     Dosage: 20 MG
     Route: 048
  5. CYMBALTA [Concomitant]
     Active Substance: DULOXETINE HYDROCHLORIDE
     Dosage: 60 MG
     Route: 065

REACTIONS (2)
  - Cold sweat [Unknown]
  - Hot flush [Unknown]
